APPROVED DRUG PRODUCT: FLECAINIDE ACETATE
Active Ingredient: FLECAINIDE ACETATE
Strength: 150MG
Dosage Form/Route: TABLET;ORAL
Application: A215599 | Product #003 | TE Code: AB
Applicant: YICHANG HUMANWELL PHARMACEUTICAL CO LTD
Approved: Sep 8, 2022 | RLD: No | RS: No | Type: RX